FAERS Safety Report 12632312 (Version 2)
Quarter: 2016Q3

REPORT INFORMATION
  Report Type: Spontaneous
  Country: US (occurrence: US)
  Receive Date: 20160808
  Receipt Date: 20160808
  Transmission Date: 20161109
  Serious: No
  Sender: FDA-Public Use
  Company Number: US-BEH-2016062377

PATIENT
  Sex: Female
  Weight: 85 kg

DRUGS (18)
  1. HIZENTRA [Suspect]
     Active Substance: HUMAN IMMUNOGLOBULIN G
     Indication: IMMUNODEFICIENCY COMMON VARIABLE
     Route: 058
  2. VITAMIN D [Concomitant]
     Active Substance: CHOLECALCIFEROL
  3. BUPROPRION XL [Concomitant]
     Active Substance: BUPROPION
  4. COENZYME [Concomitant]
     Active Substance: UBIDECARENONE
  5. FLONASE [Concomitant]
     Active Substance: FLUTICASONE PROPIONATE
  6. CLARITIN [Concomitant]
     Active Substance: LORATADINE
  7. BIOTIN [Concomitant]
     Active Substance: BIOTIN
  8. LEVOTHYROXINE. [Concomitant]
     Active Substance: LEVOTHYROXINE
  9. CITALOPRAM [Concomitant]
     Active Substance: CITALOPRAM HYDROBROMIDE
  10. SIMVASTATIN. [Concomitant]
     Active Substance: SIMVASTATIN
  11. TRIAMTERENE. [Concomitant]
     Active Substance: TRIAMTERENE
  12. HIZENTRA [Suspect]
     Active Substance: HUMAN IMMUNOGLOBULIN G
     Dosage: AS DIRECTED
     Route: 058
     Dates: start: 20160104
  13. FLUOCINOLONE [Concomitant]
     Active Substance: FLUOCINOLONE
  14. MULTIVITAMIN [Concomitant]
     Active Substance: VITAMINS
  15. FOSINOPRIL [Concomitant]
     Active Substance: FOSINOPRIL
  16. HIZENTRA [Suspect]
     Active Substance: HUMAN IMMUNOGLOBULIN G
     Route: 058
  17. GABAPENTIN. [Concomitant]
     Active Substance: GABAPENTIN
  18. ASPIRIN. [Concomitant]
     Active Substance: ASPIRIN

REACTIONS (1)
  - Sinusitis [Unknown]
